FAERS Safety Report 5828502-1 (Version None)
Quarter: 2008Q3

REPORT INFORMATION
  Report Type: 
  Country: None (occurrence: None)
  Receive Date: 20080729
  Receipt Date: 20080716
  Transmission Date: 20090109
  Serious: Yes (Other)
  Sender: FDA-Public Use
  Company Number: URSO-2008-069

PATIENT
  Age: 8 Year
  Sex: Female

DRUGS (1)
  1. URSO 250 [Suspect]
     Indication: AUTOIMMUNE HEPATITIS
     Dosage: PO
     Route: 048

REACTIONS (5)
  - AUTOIMMUNE HEPATITIS [None]
  - CHOLELITHIASIS [None]
  - CONDITION AGGRAVATED [None]
  - DISEASE PROGRESSION [None]
  - OFF LABEL USE [None]
